FAERS Safety Report 17247727 (Version 1)
Quarter: 2020Q1

REPORT INFORMATION
  Report Type: Spontaneous
  Country: US (occurrence: US)
  Receive Date: 20200107
  Receipt Date: 20200107
  Transmission Date: 20200409
  Serious: Yes (Other)
  Sender: FDA-Public Use
  Company Number: None

PATIENT
  Age: 50 Year
  Sex: Female
  Weight: 54.9 kg

DRUGS (6)
  1. SULFAMETHOXAZOLE-TMP DS TABLET [Suspect]
     Active Substance: SULFAMETHOXAZOLE\TRIMETHOPRIM
     Indication: URINARY TRACT INFECTION
     Dosage: ?          QUANTITY:1 CAPSULE(S);?
     Route: 048
     Dates: start: 20191231, end: 20200103
  2. VITAMIN D [Concomitant]
     Active Substance: VITAMIN D NOS
  3. PROBIOTIC [Concomitant]
     Active Substance: PROBIOTICS NOS
  4. OMEGA 3 [Concomitant]
     Active Substance: OMEGA-3 FATTY ACIDS
  5. MAGNESIUM [Concomitant]
     Active Substance: MAGNESIUM
  6. MULTIVITAMIN [Concomitant]
     Active Substance: VITAMINS

REACTIONS (3)
  - Emotional distress [None]
  - Sensory disturbance [None]
  - Sleep disorder [None]

NARRATIVE: CASE EVENT DATE: 20200103
